FAERS Safety Report 10094379 (Version 1)
Quarter: 2014Q2

REPORT INFORMATION
  Report Type: Spontaneous
  Country: IE (occurrence: IE)
  Receive Date: 20140422
  Receipt Date: 20140422
  Transmission Date: 20141212
  Serious: Yes (Hospitalization)
  Sender: FDA-Public Use
  Company Number: IE-SA-2014SA045347

PATIENT
  Age: 61 Year
  Sex: Male

DRUGS (2)
  1. LANTUS [Suspect]
     Indication: TYPE 1 DIABETES MELLITUS
     Dosage: 14 U AT NIGHT DOSE:14 UNIT(S)
     Route: 058
     Dates: start: 2012
  2. NOVORAPID [Suspect]
     Indication: TYPE 1 DIABETES MELLITUS
     Dosage: DOSE:7 UNIT(S)
     Route: 058
     Dates: start: 2012

REACTIONS (2)
  - Diabetic ketoacidosis [Recovered/Resolved]
  - Medication error [Unknown]
